FAERS Safety Report 8340257-8 (Version None)
Quarter: 2012Q2

REPORT INFORMATION
  Report Type: 
  Country: None (occurrence: None)
  Receive Date: 20120507
  Receipt Date: 20120430
  Transmission Date: 20120825
  Serious: Yes (Hospitalization, Other)
  Sender: FDA-Public Use
  Company Number: PHHY2012BE007647

PATIENT
  Sex: Male

DRUGS (5)
  1. ACETYLCYSTEINE [Concomitant]
     Indication: CHRONIC OBSTRUCTIVE PULMONARY DISEASE
     Route: 048
  2. ONBREZ [Suspect]
     Indication: CHRONIC OBSTRUCTIVE PULMONARY DISEASE
     Dosage: 150 UG, UNK
     Dates: start: 20111219
  3. OMEPRAZOLE [Concomitant]
     Indication: DYSPLASIA
     Dosage: 20 MG, QD
     Route: 048
     Dates: start: 20030901
  4. XANTHIUM [Concomitant]
     Indication: CHRONIC OBSTRUCTIVE PULMONARY DISEASE
     Dosage: 300 MG, BID
     Route: 048
  5. AVELOX [Suspect]
     Dosage: 400 MG, QD
     Dates: start: 20111219

REACTIONS (1)
  - CONVULSION [None]
